FAERS Safety Report 5327164-X (Version None)
Quarter: 2007Q2

REPORT INFORMATION
  Report Type: 
  Country: None (occurrence: None)
  Receive Date: 20070514
  Receipt Date: 20070412
  Transmission Date: 20071010
  Serious: Yes (Death)
  Sender: FDA-Public Use
  Company Number: 2007VX001157

PATIENT
  Age: 54 Year
  Sex: Female

DRUGS (9)
  1. INTERFERON ALFACON-1 [Suspect]
     Indication: HEPATITIS C
     Dosage: SEE IMAGE
     Route: 058
     Dates: start: 20060921, end: 20070213
  2. INTERFERON ALFACON-1 [Suspect]
     Indication: HEPATITIS C
     Dosage: SEE IMAGE
     Route: 058
     Dates: start: 20070228
  3. RIBAVIRIN [Concomitant]
  4. ARIPIPRAZOLE [Concomitant]
  5. PRILOSEC [Concomitant]
  6. TRAZODONE HCL [Concomitant]
  7. CITALOPRAM HYDROBROMIDE [Concomitant]
  8. BENZTROPINE MESYLATE [Concomitant]
  9. PHENERGAN HCL [Concomitant]

REACTIONS (1)
  - WEIGHT DECREASED [None]
